FAERS Safety Report 24390541 (Version 3)
Quarter: 2024Q4

REPORT INFORMATION
  Report Type: Report from Study
  Country: ES (occurrence: ES)
  Receive Date: 20241003
  Receipt Date: 20241126
  Transmission Date: 20250115
  Serious: Yes (Hospitalization)
  Sender: AMNEAL
  Company Number: ES-AMNEAL PHARMACEUTICALS-2024-AMRX-03571

PATIENT

DRUGS (5)
  1. ONGENTYS [Suspect]
     Active Substance: OPICAPONE
     Indication: Parkinson^s disease
     Dosage: 50 MILLIGRAM, DAILY
     Route: 065
     Dates: start: 20240208
  2. BENSERAZIDE\LEVODOPA [Concomitant]
     Active Substance: BENSERAZIDE\LEVODOPA
     Indication: Parkinson^s disease
     Dosage: 200/50 MG, THREE TIMES/DAILY (TOTAL DAILY  DOSE OF LEVODOPA: 600 MG)
     Route: 065
     Dates: start: 20161122, end: 20240722
  3. BENSERAZIDE\LEVODOPA [Concomitant]
     Active Substance: BENSERAZIDE\LEVODOPA
     Dosage: 200/50 MG (TOTAL DAILY DOSE OF LEVODOPA: 650 MG)
     Route: 065
     Dates: start: 20240723
  4. RASAGILINE [Concomitant]
     Active Substance: RASAGILINE
     Indication: Parkinson^s disease
     Dosage: 1 MILLIGRAM, 1 /DAY
     Route: 065
     Dates: start: 20091224, end: 20231019
  5. ROPINIROL [ROPINIROLE HYDROCHLORIDE] [Concomitant]
     Indication: Parkinson^s disease
     Dosage: 6 MILLIGRAM, 1 /DAY
     Route: 065
     Dates: start: 20091224

REACTIONS (3)
  - Ankle fracture [Recovering/Resolving]
  - Orthostatic hypotension [Not Recovered/Not Resolved]
  - Hypertension [Recovered/Resolved]

NARRATIVE: CASE EVENT DATE: 20240920
